FAERS Safety Report 21033886 (Version 1)
Quarter: 2022Q3

REPORT INFORMATION
  Report Type: Spontaneous
  Country: US (occurrence: US)
  Receive Date: 20220701
  Receipt Date: 20220701
  Transmission Date: 20221027
  Serious: Yes (Hospitalization, Disabling, Other)
  Sender: FDA-Public Use
  Company Number: US-TEVA-394917USA

PATIENT
  Age: 81 Year
  Sex: Female
  Weight: 79.4 kg

DRUGS (10)
  1. ALENDRONATE SODIUM [Suspect]
     Active Substance: ALENDRONATE SODIUM
     Indication: Osteopenia
     Route: 048
     Dates: start: 20080804, end: 20110218
  2. FOSAMAX [Suspect]
     Active Substance: ALENDRONATE SODIUM
     Indication: Osteopenia
     Dosage: 1.4286 MILLIGRAM DAILY;
     Route: 048
     Dates: start: 20010714, end: 200204
  3. FOSAMAX [Suspect]
     Active Substance: ALENDRONATE SODIUM
     Route: 048
     Dates: start: 200204, end: 20060621
  4. FOSAMAX [Suspect]
     Active Substance: ALENDRONATE SODIUM
     Route: 048
     Dates: start: 20061026, end: 20080804
  5. MULTI-VITAMIN [Concomitant]
     Active Substance: .ALPHA.-TOCOPHEROL ACETATE, DL-\ASCORBIC ACID\CYANOCOBALAMIN\FLUORIDE ION\FOLIC ACID\NIACIN\PYRIDOXI
     Indication: Product used for unknown indication
     Dosage: 2000 IU (INTERNATIONAL UNIT) DAILY;
     Dates: start: 2000
  6. OSCAL [Concomitant]
     Active Substance: CALCIUM CARBONATE
     Indication: Product used for unknown indication
     Dosage: 1200 MILLIGRAM DAILY;
     Dates: start: 2005
  7. POTASSIUM [Concomitant]
     Active Substance: POTASSIUM
     Indication: Product used for unknown indication
     Dosage: 160 MILLIGRAM DAILY;
     Dates: start: 2005
  8. ESOMEPRAZOLE [Concomitant]
     Active Substance: ESOMEPRAZOLE
     Indication: Product used for unknown indication
  9. BONIVA [Concomitant]
     Active Substance: IBANDRONATE SODIUM
     Indication: Osteopenia
     Route: 048
     Dates: start: 20060621, end: 20061026
  10. GEMFIBROZIL [Concomitant]
     Active Substance: GEMFIBROZIL
     Indication: Product used for unknown indication

REACTIONS (2)
  - Femur fracture [Recovered/Resolved]
  - Stress fracture [Unknown]
